FAERS Safety Report 6250608-6 (Version None)
Quarter: 2009Q2

REPORT INFORMATION
  Report Type: 
  Country: None (occurrence: None)
  Receive Date: 20090630
  Receipt Date: 20080617
  Transmission Date: 20091009
  Serious: No
  Sender: FDA-Public Use
  Company Number: US-ABBOTT-08P-163-0458382-00

PATIENT
  Sex: Female
  Weight: 59.928 kg

DRUGS (9)
  1. ZEMPLAR [Suspect]
     Indication: DRUG USE FOR UNKNOWN INDICATION
     Route: 048
     Dates: start: 20070101
  2. SHOT TO BUILD UP IRON LEVELS [Concomitant]
     Indication: ANAEMIA
     Dosage: ONCE EVERY TWO TO FOUR WEEKS
     Route: 050
     Dates: start: 20070101
  3. IRON PILLS [Concomitant]
     Indication: ANAEMIA
     Route: 048
     Dates: start: 20070101
  4. AMLODIPINE BESYLATE AND BENAZEPRIL HCL [Concomitant]
     Indication: CARDIAC DISORDER
     Route: 048
  5. EZETIMIBE [Concomitant]
     Indication: CARDIAC DISORDER
     Route: 048
  6. CARVEDILOL [Concomitant]
     Indication: CARDIAC DISORDER
     Dosage: 12.5MG 1/2 PILL
     Route: 048
  7. FUROSEMIDE INTENSOL [Concomitant]
     Indication: CARDIAC DISORDER
     Route: 048
  8. ACETYLSALICYLIC ACID [Concomitant]
     Indication: CARDIAC DISORDER
     Route: 048
  9. LYSINE [Concomitant]
     Indication: HERPES ZOSTER
     Route: 048

REACTIONS (4)
  - BACK PAIN [None]
  - EAR DISCOMFORT [None]
  - OEDEMA PERIPHERAL [None]
  - PAIN IN EXTREMITY [None]
